FAERS Safety Report 9330131 (Version 2)
Quarter: 2013Q4

REPORT INFORMATION
  Report Type: Spontaneous
  Country: US (occurrence: US)
  Receive Date: 20130604
  Receipt Date: 20131115
  Transmission Date: 20140711
  Serious: Yes (Hospitalization)
  Sender: FDA-Public Use
  Company Number: US-B.I. PHARMACEUTICALS,INC./RIDGEFIELD-2013-BI-15591BP

PATIENT
  Age: 77 Year
  Sex: Male
  Weight: 95.71 kg

DRUGS (10)
  1. PRADAXA [Suspect]
     Indication: ANTICOAGULANT THERAPY
     Dosage: 300 MG
     Dates: start: 20120222, end: 20120319
  2. PRADAXA [Suspect]
     Indication: ATRIAL FIBRILLATION
  3. ALLOPURINOL [Concomitant]
  4. ASPIRIN [Concomitant]
  5. LOVASTATIN [Concomitant]
  6. CARVEDILOL [Concomitant]
  7. LASIX [Concomitant]
  8. GLIMEPIRIDE [Concomitant]
  9. LISINOPRIL [Concomitant]
  10. METFORMIN [Concomitant]

REACTIONS (3)
  - Gastrointestinal haemorrhage [Unknown]
  - Haematuria [Unknown]
  - Anaemia [Unknown]
